FAERS Safety Report 5224722-8 (Version None)
Quarter: 2007Q1

REPORT INFORMATION
  Report Type: 
  Country: None (occurrence: None)
  Receive Date: 20070131
  Receipt Date: 20070124
  Transmission Date: 20070707
  Serious: Yes (Hospitalization)
  Sender: FDA-Public Use
  Company Number: FRWYE367026JAN07

PATIENT
  Sex: Female
  Weight: 15 kg

DRUGS (3)
  1. ADVIL ENFANTS ET NOURRISSONS [Suspect]
     Indication: TEETHING
     Route: 048
     Dates: start: 20061218, end: 20061218
  2. ADVIL ENFANTS ET NOURRISSONS [Suspect]
     Indication: PYREXIA
  3. DOLIPRANE [Concomitant]
     Dosage: UNKNOWN
     Route: 048
     Dates: start: 20061218

REACTIONS (2)
  - CELLULITIS [None]
  - CONDITION AGGRAVATED [None]
